FAERS Safety Report 9734433 (Version 1)
Quarter: 2013Q4

REPORT INFORMATION
  Report Type: Spontaneous
  Country: US (occurrence: US)
  Receive Date: 20131206
  Receipt Date: 20131206
  Transmission Date: 20140711
  Serious: Yes (Other)
  Sender: FDA-Public Use
  Company Number: US-BEH-2013039201

PATIENT
  Sex: Male

DRUGS (1)
  1. HIZENTRA [Suspect]

REACTIONS (2)
  - Interstitial lung disease [Unknown]
  - Lung disorder [Unknown]
